FAERS Safety Report 8294295-4 (Version None)
Quarter: 2012Q2

REPORT INFORMATION
  Report Type: 
  Country: None (occurrence: None)
  Receive Date: 20120413
  Receipt Date: 20120405
  Transmission Date: 20120825
  Serious: Yes (Other)
  Sender: FDA-Public Use
  Company Number: JPI-P-020688

PATIENT
  Age: 55 Year
  Sex: Female

DRUGS (16)
  1. METOCLOPRAMIDE [Concomitant]
  2. XYREM [Suspect]
     Indication: SLEEP DISORDER
     Dosage: 4.5 GM (2.25 GM,2 IN 1 D),ORAL ; 9 GM (4.5 GM,2 IN 1 D),ORAL
     Route: 048
     Dates: start: 20080901
  3. XYREM [Suspect]
     Indication: SLEEP DISORDER
     Dosage: 4.5 GM (2.25 GM,2 IN 1 D),ORAL ; 9 GM (4.5 GM,2 IN 1 D),ORAL
     Route: 048
     Dates: start: 20081027
  4. TRIAMTERENE/HYDROCHLOROTHAIZIDE [Concomitant]
  5. FLUTICASONE PROPIONATE [Concomitant]
  6. MONTELUKAST SODIUM [Concomitant]
  7. HYOSCYAMINE [Concomitant]
  8. CLONAZEPAM [Concomitant]
  9. PANTOPRAZOLE [Concomitant]
  10. POTASSIUM CHLORIDE [Concomitant]
  11. DILTIAZEM HCL [Concomitant]
  12. LEVOTHYROXINE SODIUM [Concomitant]
  13. DESVENLAFAXINE SUCCINATE [Concomitant]
  14. AZELASTINE HCL [Concomitant]
  15. VALSARTAN [Concomitant]
  16. MELOXICAM [Concomitant]

REACTIONS (1)
  - BREAST CANCER [None]
